FAERS Safety Report 21741078 (Version 1)
Quarter: 2022Q4

REPORT INFORMATION
  Report Type: Spontaneous
  Country: US (occurrence: US)
  Receive Date: 20221216
  Receipt Date: 20221216
  Transmission Date: 20230113
  Serious: No
  Sender: FDA-Public Use
  Company Number: US-AVEO ONCOLOGY-2022-AVEO-US000492

PATIENT

DRUGS (20)
  1. FOTIVDA [Suspect]
     Active Substance: TIVOZANIB HYDROCHLORIDE
     Indication: Renal cell carcinoma
     Dosage: 1.34 MG, DAILY FOR 21 DAYS WITH 7 DAYS OFF (28-DAY CYCLE)
     Route: 048
     Dates: start: 20221004
  2. FOTIVDA [Suspect]
     Active Substance: TIVOZANIB HYDROCHLORIDE
     Indication: Metastases to bone
  3. AMITRIPTYLINE [Concomitant]
     Active Substance: AMITRIPTYLINE
  4. CALCIUM CARBONATE [Concomitant]
     Active Substance: CALCIUM CARBONATE
  5. CARBIDOPA\LEVODOPA [Concomitant]
     Active Substance: CARBIDOPA\LEVODOPA
  6. CHLORDIAZEPOXIDE [Concomitant]
     Active Substance: CHLORDIAZEPOXIDE
  7. CLOBETASOL [Concomitant]
     Active Substance: CLOBETASOL
  8. COREG [Concomitant]
     Active Substance: CARVEDILOL
  9. FUROSEMIDE [Concomitant]
     Active Substance: FUROSEMIDE
  10. NORCO [Concomitant]
     Active Substance: ACETAMINOPHEN\HYDROCODONE BITARTRATE
  11. IBUPROFEN [Concomitant]
     Active Substance: IBUPROFEN
  12. METHOCARBAMOL [Concomitant]
     Active Substance: METHOCARBAMOL
  13. VITAMINS [Concomitant]
     Active Substance: VITAMINS
  14. ONDANSETRON [Concomitant]
     Active Substance: ONDANSETRON
  15. PANTOPRAZOLE [Concomitant]
     Active Substance: PANTOPRAZOLE
  16. POTASSIUM CHLORIDE [Concomitant]
     Active Substance: POTASSIUM CHLORIDE
  17. SILVADENE [Concomitant]
     Active Substance: SILVER SULFADIAZINE
  18. VITAMIN C [Concomitant]
     Active Substance: ASCORBIC ACID
  19. VITAMIN D3 [Concomitant]
     Active Substance: CHOLECALCIFEROL
  20. HYDROCODONE [Concomitant]
     Active Substance: HYDROCODONE

REACTIONS (3)
  - Hypertension [Recovering/Resolving]
  - Diarrhoea [Unknown]
  - Dysphonia [Unknown]
